FAERS Safety Report 14512123 (Version 1)
Quarter: 2018Q1

REPORT INFORMATION
  Report Type: Spontaneous
  Country: KR (occurrence: KR)
  Receive Date: 20180209
  Receipt Date: 20180209
  Transmission Date: 20180509
  Serious: Yes (Death)
  Sender: FDA-Public Use
  Company Number: KR-B.I. PHARMACEUTICALS,INC./RIDGEFIELD-2018-BI-007488

PATIENT
  Age: 65 Year
  Sex: Male

DRUGS (1)
  1. GILOTRIF [Suspect]
     Active Substance: AFATINIB
     Indication: LUNG NEOPLASM MALIGNANT
     Route: 048

REACTIONS (8)
  - Pneumonia [Fatal]
  - Cachexia [Unknown]
  - Asthenia [Unknown]
  - Constipation [Unknown]
  - Hypophagia [Unknown]
  - Drug resistance [Unknown]
  - Vomiting [Unknown]
  - Diarrhoea [Unknown]
